FAERS Safety Report 7548108-6 (Version None)
Quarter: 2011Q2

REPORT INFORMATION
  Report Type: 
  Country: None (occurrence: None)
  Receive Date: 20110615
  Receipt Date: 20110601
  Transmission Date: 20111010
  Serious: Yes (Other)
  Sender: FDA-Public Use
  Company Number: GB-RANBAXY-2011R1-45060

PATIENT
  Age: 16 Year
  Weight: 70 kg

DRUGS (2)
  1. TRIMETHOPRIM [Concomitant]
     Indication: ACNE
     Dosage: 200 MG, 2/ 1 DAYS
     Route: 048
     Dates: start: 20100701, end: 20110127
  2. ISOTRETINOIN [Suspect]
     Indication: ACNE
     Dosage: 40 MG, 1/1 DAYS
     Route: 048
     Dates: start: 20101214, end: 20110405

REACTIONS (4)
  - VISION BLURRED [None]
  - MYALGIA [None]
  - PHOTOPHOBIA [None]
  - EYE PAIN [None]
